FAERS Safety Report 7397864-9 (Version None)
Quarter: 2011Q2

REPORT INFORMATION
  Report Type: 
  Country: None (occurrence: None)
  Receive Date: 20110401
  Receipt Date: 20110401
  Transmission Date: 20111010
  Serious: Yes (Hospitalization, Other)
  Sender: FDA-Public Use
  Company Number: None

PATIENT
  Age: 75 Year
  Sex: Female

DRUGS (13)
  1. SERTRALINE [Concomitant]
  2. ISOSORBIDE MONOTITRATE [Concomitant]
  3. OMEPRAZOLE [Concomitant]
  4. METFORMIN HCL [Concomitant]
  5. AMITRIPTYLINE [Concomitant]
  6. REVLIMID [Suspect]
     Indication: MULTIPLE MYELOMA
     Dosage: REVLIMID 25MG DAILY ORALLY
     Route: 048
     Dates: start: 20110201
  7. FELODIPINE [Concomitant]
  8. OXYBUTYNIN [Concomitant]
  9. ASPIRIN [Concomitant]
  10. ATENOLOL [Concomitant]
  11. DEXAMETHASONE [Concomitant]
  12. CYANOCOBALAMIN [Concomitant]
  13. LISINOPRIL [Concomitant]

REACTIONS (7)
  - ATRIAL FIBRILLATION [None]
  - MITRAL VALVE INCOMPETENCE [None]
  - DYSPNOEA [None]
  - TROPONIN INCREASED [None]
  - CHEST PAIN [None]
  - ASTHENIA [None]
  - CORONARY ARTERY DISEASE [None]
